FAERS Safety Report 14185833 (Version 1)
Quarter: 2017Q4

REPORT INFORMATION
  Report Type: Spontaneous
  Country: DE (occurrence: DE)
  Receive Date: 20171114
  Receipt Date: 20171114
  Transmission Date: 20180321
  Serious: Yes (Hospitalization)
  Sender: FDA-Public Use
  Company Number: DE-UCBSA-2017032130

PATIENT
  Sex: Female
  Weight: 59 kg

DRUGS (7)
  1. PREDNISOLONE. [Concomitant]
     Active Substance: PREDNISOLONE
     Dosage: UNK
     Dates: start: 2000, end: 20170818
  2. CIMZIA [Suspect]
     Active Substance: CERTOLIZUMAB PEGOL
     Indication: PSORIATIC ARTHROPATHY
     Dosage: 400 MG, EV 2 WEEKS(QOW) (DOSE NUMBER )
     Route: 058
     Dates: start: 20170425, end: 20170529
  3. DEKRISTOL [Concomitant]
     Active Substance: CHOLECALCIFEROL
     Dosage: UNK
     Dates: start: 2008
  4. PREDNISOLON [Concomitant]
     Active Substance: PREDNISOLONE
     Indication: PSORIATIC ARTHROPATHY
     Dosage: 5 MG, ONCE DAILY (QD)
     Route: 048
     Dates: start: 20160907, end: 201707
  5. DICLOFENAC [Concomitant]
     Active Substance: DICLOFENAC
     Indication: PSORIATIC ARTHROPATHY
     Dosage: 75 MG, AS NEEDED (PRN)
     Route: 048
  6. EUTHYROX [Concomitant]
     Active Substance: LEVOTHYROXINE SODIUM
     Dosage: UNK
     Dates: start: 2009
  7. CORTISONE [Concomitant]
     Active Substance: CORTISONE\HYDROCORTISONE
     Indication: RASH
     Dosage: UNK
     Dates: start: 2017

REACTIONS (4)
  - Injection site erythema [Unknown]
  - Histamine intolerance [Unknown]
  - Pruritus [Unknown]
  - Rash generalised [Not Recovered/Not Resolved]

NARRATIVE: CASE EVENT DATE: 2017
